FAERS Safety Report 8398471-1 (Version None)
Quarter: 2012Q2

REPORT INFORMATION
  Report Type: 
  Country: None (occurrence: None)
  Receive Date: 20120531
  Receipt Date: 20111107
  Transmission Date: 20120825
  Serious: Yes (Hospitalization)
  Sender: FDA-Public Use
  Company Number: US-ROCHE-1011617

PATIENT
  Sex: Female

DRUGS (8)
  1. HERCEPTIN [Suspect]
     Indication: BREAST CANCER
     Dosage: OVER 90 MIN ON DAY 1, WEEK 1 ONLY
     Route: 042
     Dates: start: 20050817
  2. CARBOPLATIN [Suspect]
     Indication: BREAST CANCER
     Dosage: AUC 2,OVER 1 HOUR ON DAYS 1,8 AND 15.
     Route: 042
     Dates: start: 20050817
  3. METOPROLOL SUCCINATE [Suspect]
     Indication: PRODUCT USED FOR UNKNOWN INDICATION
  4. LORAZEPAM [Suspect]
     Indication: PRODUCT USED FOR UNKNOWN INDICATION
  5. HERCEPTIN [Suspect]
     Dosage: OVER 90 MIN ON DAY 1,MAINTENANCE THERAPY
     Route: 042
  6. EPOTHILONE NOS [Suspect]
     Indication: BREAST CANCER
     Dosage: OVER 1 HOUR ON DAYS 1,8 AND 15
     Route: 042
     Dates: start: 20050817
  7. AMLODIPINE [Suspect]
     Indication: PRODUCT USED FOR UNKNOWN INDICATION
  8. HERCEPTIN [Suspect]
     Dosage: OVER 30 MIN ON DAY1,8 ,15AND 22 STARTING ON WEEK 2
     Route: 042

REACTIONS (5)
  - DIARRHOEA [None]
  - DEHYDRATION [None]
  - VISION BLURRED [None]
  - HYPOXIA [None]
  - HYPOTENSION [None]
